FAERS Safety Report 6572101-3 (Version None)
Quarter: 2010Q1

REPORT INFORMATION
  Report Type: 
  Country: None (occurrence: None)
  Receive Date: 20100205
  Receipt Date: 20100125
  Transmission Date: 20100710
  Serious: Yes (Hospitalization)
  Sender: FDA-Public Use
  Company Number: PHHY2009CA31929

PATIENT
  Sex: Female

DRUGS (1)
  1. SANDOSTATIN LAR [Suspect]
     Indication: METASTATIC BRONCHIAL CARCINOMA
     Dosage: 30 MG, QMO
     Route: 030
     Dates: start: 20090505

REACTIONS (3)
  - BLOOD GLUCOSE ABNORMAL [None]
  - DYSPNOEA [None]
  - GALLBLADDER OPERATION [None]
